FAERS Safety Report 19780371 (Version 1)
Quarter: 2021Q3

REPORT INFORMATION
  Report Type: Spontaneous
  Country: US (occurrence: US)
  Receive Date: 20210902
  Receipt Date: 20210902
  Transmission Date: 20211014
  Serious: No
  Sender: FDA-Public Use
  Company Number: US-PFIZER INC-202100992860

PATIENT
  Age: 63 Year
  Sex: Male
  Weight: 86.18 kg

DRUGS (1)
  1. CHANTIX [Suspect]
     Active Substance: VARENICLINE TARTRATE
     Dosage: 1 MG, 2X/DAY
     Route: 048
     Dates: start: 20210505, end: 20210614

REACTIONS (5)
  - Joint swelling [Unknown]
  - Joint injury [Unknown]
  - Fall [Unknown]
  - Intentional product misuse [Unknown]
  - Weight increased [Unknown]
